FAERS Safety Report 11827734 (Version 1)
Quarter: 2015Q4

REPORT INFORMATION
  Report Type: Spontaneous
  Country: US (occurrence: US)
  Receive Date: 20151211
  Receipt Date: 20151211
  Transmission Date: 20160305
  Serious: No
  Sender: FDA-Public Use
  Company Number: US-BAUSCH-BL-2015-000397

PATIENT
  Age: 75 Year
  Sex: Male

DRUGS (3)
  1. XENAZINE [Suspect]
     Active Substance: TETRABENAZINE
     Indication: HUNTINGTON^S DISEASE
     Route: 048
     Dates: start: 20141218
  2. XENAZINE [Suspect]
     Active Substance: TETRABENAZINE
     Route: 048
  3. XENAZINE [Suspect]
     Active Substance: TETRABENAZINE
     Dosage: TWO IN THE AM, ONE AT NOON, AND ONE AT NIGHT
     Route: 048
     Dates: start: 20141218

REACTIONS (7)
  - Hypersomnia [Unknown]
  - Bradykinesia [Unknown]
  - Movement disorder [Unknown]
  - Gait disturbance [Unknown]
  - Fall [Unknown]
  - Dry mouth [Unknown]
  - Restlessness [Recovered/Resolved]

NARRATIVE: CASE EVENT DATE: 201501
